FAERS Safety Report 6210008-1 (Version None)
Quarter: 2009Q2

REPORT INFORMATION
  Report Type: 
  Country: None (occurrence: None)
  Receive Date: 20090527
  Receipt Date: 20090518
  Transmission Date: 20091009
  Serious: Yes (Hospitalization)
  Sender: FDA-Public Use
  Company Number: GXKR2009IT05242

PATIENT
  Age: 33 Year
  Sex: Female

DRUGS (8)
  1. VALPROIC ACID [Suspect]
     Indication: PSYCHOTIC DISORDER
  2. PAROXETINE HCL [Concomitant]
  3. FLURAZEPAM [Concomitant]
  4. LORAZEPAM [Concomitant]
  5. CORTICOSTEROIDS (NO INGREDIENTS/SUBSTANCES) [Concomitant]
  6. POTASSIUM (POTASSIUM) [Concomitant]
  7. SODIUM BICARBONATE IN PLASTIC CONTAINER [Concomitant]
  8. AMINO ACIDS NOS (AMINO ACIDS NOS) [Concomitant]

REACTIONS (8)
  - CENTRAL PONTINE MYELINOLYSIS [None]
  - COMA [None]
  - CONDITION AGGRAVATED [None]
  - ENCEPHALOPATHY [None]
  - HYPERAMMONAEMIA [None]
  - HYPERNATRAEMIA [None]
  - RENAL TUBULAR ACIDOSIS [None]
  - SJOGREN'S SYNDROME [None]
